FAERS Safety Report 9932191 (Version 2)
Quarter: 2014Q1

REPORT INFORMATION
  Report Type: Report from Study
  Country: US (occurrence: US)
  Receive Date: 20140228
  Receipt Date: 20140228
  Transmission Date: 20141002
  Serious: No
  Sender: FDA-Public Use
  Company Number: US-ABBVIE-13P-163-1158940-00

PATIENT
  Age: 39 Year
  Sex: Male

DRUGS (2)
  1. ANDROGEL [Suspect]
     Indication: BLOOD TESTOSTERONE DECREASED
     Dates: start: 201302, end: 201303
  2. ANDROGEL [Suspect]

REACTIONS (2)
  - Cluster headache [Recovered/Resolved]
  - Drug dose omission [Recovered/Resolved]
